FAERS Safety Report 5230537-7 (Version None)
Quarter: 2007Q1

REPORT INFORMATION
  Report Type: 
  Country: None (occurrence: None)
  Receive Date: 20070206
  Receipt Date: 20070205
  Transmission Date: 20070707
  Serious: Yes (Other)
  Sender: FDA-Public Use
  Company Number: US-GLAXOSMITHKLINE-A0638223A

PATIENT
  Sex: Male

DRUGS (3)
  1. PAXIL [Suspect]
     Indication: DEPRESSION
     Route: 048
     Dates: start: 19990101
  2. BUPROPION HYDROCHLORIDE [Suspect]
     Route: 048
  3. RISPERDAL [Concomitant]
     Indication: BIPOLAR DISORDER

REACTIONS (5)
  - AMNESIA [None]
  - IRRITABILITY [None]
  - PHYSICAL ASSAULT [None]
  - RESTLESSNESS [None]
  - SMOKER [None]
